FAERS Safety Report 24529179 (Version 1)
Quarter: 2024Q4

REPORT INFORMATION
  Report Type: Spontaneous
  Country: US (occurrence: None)
  Receive Date: 20241021
  Receipt Date: 20241021
  Transmission Date: 20250115
  Serious: Yes (Hospitalization)
  Sender: Public
  Company Number: None

PATIENT
  Sex: Female

DRUGS (6)
  1. CREON [Suspect]
     Active Substance: PANCRELIPASE AMYLASE\PANCRELIPASE LIPASE\PANCRELIPASE PROTEASE
     Indication: Cystic fibrosis
     Dosage: FREQ: TAKE 1 CAPSULE BY MOUTH WITH MEALS AND SNACKS. TAKE WITH CREON 12.000. TAKE UPTO 5 CAPSULES ?D
     Route: 048
     Dates: start: 20231223
  2. ORKAMBI GRA 100-125 [Concomitant]
  3. PULMOZYME SOL 1MG/ML [Concomitant]
  4. SODIUM CHLORIDE [Concomitant]
  5. TOBRAMYCIN NEB 300/5ML [Concomitant]
  6. CREON 12,000 UNIT DR CAP [Concomitant]

REACTIONS (1)
  - Infective pulmonary exacerbation of cystic fibrosis [None]
